FAERS Safety Report 9520776 (Version 1)
Quarter: 2013Q1

REPORT INFORMATION
  Report Type: Spontaneous
  Country: US (occurrence: None)
  Receive Date: 20130305
  Receipt Date: 20130305
  Transmission Date: 20140127
  Serious: Yes (Other)
  Sender: FDA-Public Use
  Company Number: 163-21880-12070411

PATIENT
  Age: 73 Year
  Sex: Female

DRUGS (1)
  1. REVLIMID (LENALIDOMIDE) (CAPSULES) [Suspect]
     Indication: MYELODYSPLASTIC SYNDROME
     Dosage: 10 MG,  X21 DAYS,  PO
     Route: 048
     Dates: start: 20120419, end: 20120702

REACTIONS (2)
  - Disease progression [None]
  - Leukaemia [None]
